FAERS Safety Report 5261786-X (Version None)
Quarter: 2007Q1

REPORT INFORMATION
  Report Type: 
  Country: None (occurrence: None)
  Receive Date: 20070308
  Receipt Date: 20070226
  Transmission Date: 20070707
  Serious: Yes (Death)
  Sender: FDA-Public Use
  Company Number: SPI200700037

PATIENT
  Age: 55 Year
  Sex: Male
  Weight: 56.7 kg

DRUGS (2)
  1. AMITIZA [Suspect]
     Indication: CONSTIPATION
     Dosage: 24 MCG, BID, ORAL
     Route: 048
     Dates: start: 20070109, end: 20070118
  2. COLACE (DCUSATE SODIUM) [Concomitant]

REACTIONS (3)
  - APNOEA [None]
  - GASTROINTESTINAL DISORDER [None]
  - PNEUMONIA ASPIRATION [None]
